FAERS Safety Report 18810572 (Version 1)
Quarter: 2021Q1

REPORT INFORMATION
  Report Type: Spontaneous
  Country: US (occurrence: US)
  Receive Date: 20210130
  Receipt Date: 20210130
  Transmission Date: 20210419
  Serious: Yes (Other)
  Sender: FDA-Public Use
  Company Number: US-ROCHE-2756905

PATIENT
  Age: 74 Year
  Sex: Female
  Weight: 59.93 kg

DRUGS (2)
  1. ACTEMRA [Suspect]
     Active Substance: TOCILIZUMAB
  2. ACTEMRA [Suspect]
     Active Substance: TOCILIZUMAB
     Indication: RHEUMATOID ARTHRITIS
     Dosage: ONGOING: YES
     Route: 058
     Dates: start: 2020

REACTIONS (4)
  - Blindness [Unknown]
  - Device leakage [Unknown]
  - Device issue [Unknown]
  - Amnesia [Unknown]

NARRATIVE: CASE EVENT DATE: 20210119
